FAERS Safety Report 6134962-1 (Version None)
Quarter: 2009Q1

REPORT INFORMATION
  Report Type: 
  Country: None (occurrence: None)
  Receive Date: 20090327
  Receipt Date: 20090317
  Transmission Date: 20090719
  Serious: Yes (Hospitalization)
  Sender: FDA-Public Use
  Company Number: TR-WATSON-2009-01777

PATIENT
  Age: 24 Year
  Sex: Male

DRUGS (3)
  1. ETOPOSIDE [Suspect]
     Indication: TESTICULAR GERM CELL TUMOUR MIXED STAGE I
     Dosage: UNK
  2. BLEOMYCIN SULFATE [Suspect]
     Indication: TESTICULAR GERM CELL TUMOUR MIXED STAGE I
     Dosage: UNK
  3. CISPLATIN [Suspect]
     Indication: TESTICULAR GERM CELL TUMOUR MIXED STAGE I
     Dosage: UNK

REACTIONS (1)
  - GASTROINTESTINAL HAEMORRHAGE [None]
